FAERS Safety Report 14909908 (Version 1)
Quarter: 2018Q2

REPORT INFORMATION
  Report Type: Report from Study
  Country: US (occurrence: US)
  Receive Date: 20180517
  Receipt Date: 20180517
  Transmission Date: 20180711
  Serious: Yes (Death, Life-Threatening, Hospitalization, Other)
  Sender: FDA-Public Use
  Company Number: US-BRISTOL-MYERS SQUIBB COMPANY-BMS-2018-045281

PATIENT
  Age: 48 Year
  Sex: Male
  Weight: 61.6 kg

DRUGS (1)
  1. IPILIMUMAB [Suspect]
     Active Substance: IPILIMUMAB
     Indication: ANAPLASTIC THYROID CANCER
     Dosage: UNK UNK, Q6WK
     Route: 042
     Dates: start: 20180425

REACTIONS (2)
  - Malignant neoplasm progression [Fatal]
  - Pneumonia [Unknown]

NARRATIVE: CASE EVENT DATE: 20180510
